FAERS Safety Report 23262204 (Version 1)
Quarter: 2023Q4

REPORT INFORMATION
  Report Type: Spontaneous
  Country: IT (occurrence: IT)
  Receive Date: 20231205
  Receipt Date: 20231205
  Transmission Date: 20240110
  Serious: Yes (Other)
  Sender: FDA-Public Use
  Company Number: None

PATIENT

DRUGS (2)
  1. CYCLOPHOSPHAMIDE [Suspect]
     Active Substance: CYCLOPHOSPHAMIDE
     Indication: Breast neoplasm
     Dosage: UNK
     Route: 065
     Dates: start: 20230616
  2. EPIRUBICIN [Suspect]
     Active Substance: EPIRUBICIN
     Indication: Breast neoplasm
     Dosage: UNK
     Route: 065
     Dates: start: 20230616

REACTIONS (14)
  - Neutropenia [Recovered/Resolved]
  - Pain [Recovering/Resolving]
  - Pain in extremity [Recovered/Resolved]
  - Abdominal pain [Recovered/Resolved]
  - Paraesthesia [Recovered/Resolved]
  - Coordination abnormal [Recovering/Resolving]
  - Thrombophlebitis [Recovered/Resolved]
  - Alopecia [Recovering/Resolving]
  - Erythema [Recovered/Resolved]
  - Headache [Recovering/Resolving]
  - Throat irritation [Recovered/Resolved]
  - Mucosal inflammation [Recovered/Resolved]
  - Nausea [Recovering/Resolving]
  - Pruritus [Recovered/Resolved]

NARRATIVE: CASE EVENT DATE: 20230601
